FAERS Safety Report 9879562 (Version 2)
Quarter: 2014Q1

REPORT INFORMATION
  Report Type: Spontaneous
  Country: BR (occurrence: BR)
  Receive Date: 20140206
  Receipt Date: 20140213
  Transmission Date: 20141002
  Serious: Yes (Other)
  Sender: FDA-Public Use
  Company Number: BR-PFIZER INC-2014030600

PATIENT
  Age: 77 Year
  Sex: Male
  Weight: 50 kg

DRUGS (4)
  1. LIPITOR [Suspect]
     Indication: BLOOD CHOLESTEROL INCREASED
     Dosage: 40 MG, DAILY
     Route: 048
     Dates: start: 2008
  2. LIPITOR [Suspect]
     Indication: BLOOD CHOLESTEROL
  3. ENALAPRIL [Concomitant]
     Indication: HYPERTENSION
     Dosage: 2 TABLETS, DAILY
     Dates: start: 2008
  4. SELOZOK [Concomitant]
     Indication: CARDIAC DISORDER
     Dosage: 1 TABLET, DAILY
     Dates: start: 2008

REACTIONS (3)
  - Cardiac disorder [Unknown]
  - Breast disorder male [Unknown]
  - Drug ineffective [Unknown]
